FAERS Safety Report 12249778 (Version 3)
Quarter: 2016Q2

REPORT INFORMATION
  Report Type: Report from Study
  Country: US (occurrence: US)
  Receive Date: 20160408
  Receipt Date: 20160601
  Transmission Date: 20160815
  Serious: No
  Sender: FDA-Public Use
  Company Number: ADR-2015-01481

PATIENT
  Age: 58 Year
  Sex: Male

DRUGS (10)
  1. COMPOUNDED BACLOFEN [Suspect]
     Active Substance: BACLOFEN
     Dosage: 689.1 MCG/DAY
     Route: 037
  2. BUPIVACAINE. [Suspect]
     Active Substance: BUPIVACAINE
     Dosage: 13.783 MG/DAY
     Route: 037
  3. DILAUDID [Concomitant]
     Active Substance: HYDROMORPHONE HYDROCHLORIDE
  4. CLONIDINE. [Suspect]
     Active Substance: CLONIDINE
     Dosage: 68.91 MCG/DAY
     Route: 037
  5. NEURONTIN [Concomitant]
     Active Substance: GABAPENTIN
  6. HYDROMORPHONE [Suspect]
     Active Substance: HYDROMORPHONE
     Route: 037
  7. ZANAFLEX [Concomitant]
     Active Substance: TIZANIDINE HYDROCHLORIDE
  8. REMERON [Concomitant]
     Active Substance: MIRTAZAPINE
  9. MIRALAX [Concomitant]
     Active Substance: POLYETHYLENE GLYCOL 3350
  10. MORPHINE [Suspect]
     Active Substance: MORPHINE
     Dosage: 4.594 MG/DAY
     Route: 037

REACTIONS (2)
  - Hyperhidrosis [Recovered/Resolved]
  - Dry eye [Recovered/Resolved]

NARRATIVE: CASE EVENT DATE: 20120529
